FAERS Safety Report 17039681 (Version 16)
Quarter: 2022Q3

REPORT INFORMATION
  Report Type: Report from Study
  Country: US (occurrence: US)
  Receive Date: 20191116
  Receipt Date: 20220624
  Transmission Date: 20221026
  Serious: Yes (Hospitalization, Other)
  Sender: FDA-Public Use
  Company Number: US-NOVARTISPH-NVSC2019US036726

PATIENT
  Age: 61 Year
  Sex: Female
  Weight: 40.3 kg

DRUGS (21)
  1. LAMPRENE [Suspect]
     Active Substance: CLOFAZIMINE
     Indication: Mycobacterium abscessus infection
     Dosage: 100 MG, QD
     Route: 048
     Dates: start: 20170804, end: 202006
  2. LAMPRENE [Suspect]
     Active Substance: CLOFAZIMINE
     Indication: Lung disorder
     Dosage: 50 MG, QD
     Route: 048
     Dates: start: 20200717
  3. LAMPRENE [Suspect]
     Active Substance: CLOFAZIMINE
     Indication: Cystic fibrosis
  4. LAMPRENE [Suspect]
     Active Substance: CLOFAZIMINE
     Indication: Mycobacterium avium complex infection
  5. PROVENTIL [Concomitant]
     Active Substance: ALBUTEROL
     Indication: Product used for unknown indication
     Dosage: 1 DF, BID (2.5 MG/3 ML) 0.083 %
     Route: 055
  6. ZITHROMAX [Concomitant]
     Active Substance: AZITHROMYCIN DIHYDRATE
     Indication: Product used for unknown indication
     Dosage: 250 MG, QD
     Route: 048
  7. BEDAQUILINE [Concomitant]
     Active Substance: BEDAQUILINE
     Indication: Product used for unknown indication
     Dosage: 400 MG, QD
     Route: 048
  8. BEDAQUILINE [Concomitant]
     Active Substance: BEDAQUILINE
     Dosage: 100 MG, TIW (2 TABS 3 TIMES PER WEEK)
     Route: 048
     Dates: start: 20200616
  9. BEDAQUILINE [Concomitant]
     Active Substance: BEDAQUILINE
     Dosage: UNK DOSE INCREASED
     Route: 065
     Dates: start: 20200604, end: 20200617
  10. BEDAQUILINE [Concomitant]
     Active Substance: BEDAQUILINE
     Dosage: UNK
     Route: 065
     Dates: start: 20200617
  11. PULMOZYME [Concomitant]
     Active Substance: DORNASE ALFA
     Indication: Product used for unknown indication
     Dosage: 2.5 MG, BID (1 MG/ML SOLUTION)
     Route: 055
     Dates: start: 20200401
  12. VITAMIN D3 [Concomitant]
     Active Substance: CHOLECALCIFEROL
     Indication: Product used for unknown indication
     Dosage: 5000 U, QD
     Route: 048
  13. PROBIOTICS NOS [Concomitant]
     Active Substance: PROBIOTICS NOS
     Indication: Product used for unknown indication
     Dosage: 1 DF, QD
     Route: 048
  14. MINOCYCLINE [Concomitant]
     Active Substance: MINOCYCLINE HYDROCHLORIDE
     Indication: Product used for unknown indication
     Dosage: UNK
     Route: 065
     Dates: start: 201911, end: 20191126
  15. MINOCYCLINE [Concomitant]
     Active Substance: MINOCYCLINE HYDROCHLORIDE
     Dosage: UNK
     Route: 065
     Dates: start: 20200107, end: 20200521
  16. SODIUM CHLORIDE [Concomitant]
     Active Substance: SODIUM CHLORIDE
     Indication: Product used for unknown indication
     Dosage: 4 ML, BID
     Route: 055
     Dates: start: 20200515
  17. ISOVUE 370 [Concomitant]
     Active Substance: IOPAMIDOL
     Indication: Product used for unknown indication
     Dosage: 51 ML
     Route: 042
     Dates: start: 20191027
  18. ALBUTEROL [Concomitant]
     Active Substance: ALBUTEROL
     Indication: Product used for unknown indication
     Dosage: 1 DF (2.5MG/3ML), BID
     Route: 055
     Dates: start: 20191230
  19. ALBUTEROL [Concomitant]
     Active Substance: ALBUTEROL
     Dosage: 1 DF (2.5MG/3ML), BID
     Route: 055
     Dates: start: 20201222
  20. MINERALS\VITAMINS [Concomitant]
     Active Substance: MINERALS\VITAMINS
     Indication: Product used for unknown indication
     Dosage: 2 DF
     Route: 048
     Dates: start: 20210126
  21. ONDANSETRON [Concomitant]
     Active Substance: ONDANSETRON
     Indication: Product used for unknown indication
     Dosage: 4 MG, PRN
     Route: 048
     Dates: start: 20200612

REACTIONS (39)
  - Cholangitis [Recovered/Resolved]
  - Cholestasis [Recovered/Resolved]
  - Blood alkaline phosphatase increased [Recovering/Resolving]
  - Gamma-glutamyltransferase increased [Recovering/Resolving]
  - Hepatic steatosis [Recovered/Resolved]
  - Haemoptysis [Recovered/Resolved]
  - Portal fibrosis [Recovered/Resolved]
  - Infective pulmonary exacerbation of cystic fibrosis [Recovered/Resolved with Sequelae]
  - Lung opacity [Unknown]
  - Haematocrit decreased [Unknown]
  - Vomiting [Unknown]
  - White blood cell count increased [Unknown]
  - Infective pulmonary exacerbation of cystic fibrosis [Recovering/Resolving]
  - Asthenia [Unknown]
  - Lung infiltration [Unknown]
  - Quality of life decreased [Unknown]
  - Pneumonia [Not Recovered/Not Resolved]
  - Mycobacterium avium complex infection [Not Recovered/Not Resolved]
  - Dyspnoea [Not Recovered/Not Resolved]
  - Chest pain [Not Recovered/Not Resolved]
  - Pleuritic pain [Not Recovered/Not Resolved]
  - Myalgia [Not Recovered/Not Resolved]
  - Rhinorrhoea [Not Recovered/Not Resolved]
  - Nausea [Not Recovered/Not Resolved]
  - Cough [Not Recovered/Not Resolved]
  - Blood pressure decreased [Unknown]
  - Embolism venous [Not Recovered/Not Resolved]
  - Pulmonary embolism [Recovering/Resolving]
  - Deafness [Not Recovered/Not Resolved]
  - Fall [Unknown]
  - Rash pruritic [Not Recovered/Not Resolved]
  - Hepatic enzyme increased [Recovering/Resolving]
  - Arthralgia [Not Recovered/Not Resolved]
  - Exfoliative rash [Not Recovered/Not Resolved]
  - Constipation [Not Recovered/Not Resolved]
  - Skin laceration [Recovering/Resolving]
  - Productive cough [Recovering/Resolving]
  - Tachycardia [Recovering/Resolving]
  - Amnesia [Not Recovered/Not Resolved]

NARRATIVE: CASE EVENT DATE: 20191027
